FAERS Safety Report 10916239 (Version 3)
Quarter: 2015Q2

REPORT INFORMATION
  Report Type: Spontaneous
  Country: IT (occurrence: IT)
  Receive Date: 20150316
  Receipt Date: 20150504
  Transmission Date: 20150821
  Serious: Yes (Death, Life-Threatening, Hospitalization)
  Sender: FDA-Public Use
  Company Number: IT-BAXTER-2015BAX012796

PATIENT
  Age: 67 Year
  Sex: Female
  Weight: 55 kg

DRUGS (4)
  1. PREMETREXED DISODICO [Suspect]
     Active Substance: PEMETREXED DISODIUM
     Indication: LUNG ADENOCARCINOMA
     Route: 042
     Dates: start: 20140625, end: 20150119
  2. ALIMTA [Suspect]
     Active Substance: PEMETREXED DISODIUM
     Indication: CHEMOTHERAPY
     Route: 065
     Dates: start: 201406, end: 20150119
  3. SODIO CLORURO 0,9% BAXTER [Suspect]
     Active Substance: SODIUM CHLORIDE
     Indication: PRODUCT USED FOR UNKNOWN INDICATION
     Route: 065
     Dates: start: 20140625, end: 20150119
  4. PALEXIA [Concomitant]
     Active Substance: TAPENTADOL HYDROCHLORIDE
     Indication: PAIN
     Route: 048
     Dates: start: 20140501, end: 20150126

REACTIONS (13)
  - Tachypnoea [Unknown]
  - Pulmonary oedema [Fatal]
  - Acute kidney injury [Fatal]
  - Atrial fibrillation [Unknown]
  - Pancytopenia [Fatal]
  - Pyrexia [Fatal]
  - Cardio-respiratory arrest [Fatal]
  - Shock [Unknown]
  - Unresponsive to stimuli [Unknown]
  - Dehydration [Unknown]
  - Abdominal pain [Unknown]
  - Sopor [Unknown]
  - Hypotension [Unknown]

NARRATIVE: CASE EVENT DATE: 20150126
